FAERS Safety Report 7010673-5 (Version None)
Quarter: 2010Q3

REPORT INFORMATION
  Report Type: 
  Country: None (occurrence: None)
  Receive Date: 20100923
  Receipt Date: 20100916
  Transmission Date: 20110219
  Serious: Yes (Other)
  Sender: FDA-Public Use
  Company Number: US-AMGEN-KDL439016

PATIENT
  Sex: Female

DRUGS (1)
  1. ENBREL [Suspect]
     Indication: RHEUMATOID ARTHRITIS
     Route: 058
     Dates: end: 20100401

REACTIONS (8)
  - DYSPEPSIA [None]
  - FATIGUE [None]
  - NAUSEA [None]
  - NEUROENDOCRINE CARCINOMA OF THE SKIN [None]
  - RHEUMATOID ARTHRITIS [None]
  - SEASONAL AFFECTIVE DISORDER [None]
  - VOMITING [None]
  - WEIGHT DECREASED [None]
